FAERS Safety Report 21696495 (Version 1)
Quarter: 2022Q4

REPORT INFORMATION
  Report Type: Spontaneous
  Country: CA (occurrence: CA)
  Receive Date: 20221207
  Receipt Date: 20221207
  Transmission Date: 20230112
  Serious: Yes (Hospitalization, Other)
  Sender: FDA-Public Use
  Company Number: CA-CELLTRION INC.-2022CA020625

PATIENT

DRUGS (2)
  1. INFLECTRA [Suspect]
     Active Substance: INFLIXIMAB-DYYB
     Indication: Colitis ulcerative
     Dosage: 370 MG, 5 MG/KG Q 0, 2,6 THEN EVERY 8 WEEKS WEEK 0 DOSE AT HOSPITAL
     Route: 042
     Dates: start: 20221125
  2. SOLU-MEDROL [Concomitant]
     Active Substance: METHYLPREDNISOLONE SODIUM SUCCINATE
     Indication: Colitis ulcerative
     Dosage: 30 MG, 2X/DAY
     Route: 065

REACTIONS (2)
  - Intestinal perforation [Unknown]
  - Colectomy [Unknown]

NARRATIVE: CASE EVENT DATE: 20221101
